FAERS Safety Report 6409948-X (Version None)
Quarter: 2009Q4

REPORT INFORMATION
  Report Type: 
  Country: None (occurrence: None)
  Receive Date: 20091022
  Receipt Date: 20090401
  Transmission Date: 20100525
  Serious: No
  Sender: FDA-Public Use
  Company Number: US-ABBOTT-09P-163-0566176-00

PATIENT
  Sex: Female

DRUGS (2)
  1. CALCIJEX [Suspect]
     Indication: RENAL FAILURE
     Dosage: UNKNOWN DOSE
     Route: 050
  2. CALCIJEX [Suspect]
     Indication: DIALYSIS

REACTIONS (1)
  - SWELLING [None]
